FAERS Safety Report 13088971 (Version 1)
Quarter: 2017Q1

REPORT INFORMATION
  Report Type: Spontaneous
  Country: FR (occurrence: FR)
  Receive Date: 20170105
  Receipt Date: 20170105
  Transmission Date: 20170428
  Serious: Yes (Hospitalization)
  Sender: FDA-Public Use
  Company Number: FR-PFIZER INC-2016605115

PATIENT
  Age: 53 Year
  Sex: Female

DRUGS (2)
  1. DEPAKINE CHRONO [Suspect]
     Active Substance: VALPROATE SODIUM
     Dosage: UNK
     Route: 048
     Dates: start: 20161025, end: 20161025
  2. LYRICA [Suspect]
     Active Substance: PREGABALIN
     Dosage: UNK
     Route: 048
     Dates: start: 20161025, end: 20161025

REACTIONS (6)
  - Generalised tonic-clonic seizure [Recovered/Resolved]
  - Affect lability [Unknown]
  - Toxicity to various agents [Not Recovered/Not Resolved]
  - Drug abuse [Not Recovered/Not Resolved]
  - Crying [Unknown]
  - Polydipsia [Not Recovered/Not Resolved]

NARRATIVE: CASE EVENT DATE: 20161025
